FAERS Safety Report 14176543 (Version 2)
Quarter: 2018Q1

REPORT INFORMATION
  Report Type: Report from Study
  Country: KR (occurrence: KR)
  Receive Date: 20171110
  Receipt Date: 20180208
  Transmission Date: 20180508
  Serious: Yes (Other)
  Sender: FDA-Public Use
  Company Number: KR-UCBSA-2017044501

PATIENT
  Age: 9 Year
  Sex: Female

DRUGS (5)
  1. LEVETIRACETAM. [Suspect]
     Active Substance: LEVETIRACETAM
     Indication: SEIZURE
     Dosage: 20 MG/KG/DAY
     Route: 048
  2. TOPIRAMATE. [Concomitant]
     Active Substance: TOPIRAMATE
     Indication: SEIZURE
     Dosage: UNKNOWN DOSE
  3. CLOBAZAM [Concomitant]
     Active Substance: CLOBAZAM
     Indication: SEIZURE
     Dosage: UNKNOWN DOSE
  4. OXCARBAZEPINE. [Concomitant]
     Active Substance: OXCARBAZEPINE
     Indication: SEIZURE
     Dosage: UNKNOWN DOSE
  5. LEVETIRACETAM. [Suspect]
     Active Substance: LEVETIRACETAM
     Dosage: 30 MG/KG/DAY
     Route: 048

REACTIONS (1)
  - Seizure [Unknown]
